FAERS Safety Report 5035904-2 (Version None)
Quarter: 2006Q2

REPORT INFORMATION
  Report Type: 
  Country: None (occurrence: None)
  Receive Date: 20060622
  Receipt Date: 20060613
  Transmission Date: 20061013
  Serious: Yes (Hospitalization, Other)
  Sender: FDA-Public Use
  Company Number: 2005-11-1816

PATIENT
  Age: 44 Year
  Sex: Male
  Weight: 65.318 kg

DRUGS (4)
  1. REBETOL [Suspect]
     Indication: HEPATITIS C
     Dosage: 1000 MG QD ORAL
     Route: 048
     Dates: start: 20041223, end: 20051124
  2. PEG-INTRON [Suspect]
     Indication: HEPATITIS C
     Dosage: BLINDED SUBCUTANEOUS
     Route: 058
     Dates: start: 20041223, end: 20051118
  3. TYLENOL EXTRA STRENGTH [Concomitant]
  4. CYCLOBENZAPRINE HCL [Concomitant]

REACTIONS (12)
  - BUNDLE BRANCH BLOCK RIGHT [None]
  - CHEST PAIN [None]
  - DYSPNOEA [None]
  - HAEMATOCRIT DECREASED [None]
  - HAEMOGLOBIN DECREASED [None]
  - LABORATORY TEST ABNORMAL [None]
  - PERICARDITIS [None]
  - PYREXIA [None]
  - RED BLOOD CELL SEDIMENTATION RATE INCREASED [None]
  - SINUS TACHYCARDIA [None]
  - TROPONIN INCREASED [None]
  - VIRAL INFECTION [None]
